FAERS Safety Report 5626714-3 (Version None)
Quarter: 2008Q1

REPORT INFORMATION
  Report Type: 
  Country: None (occurrence: None)
  Receive Date: 20080214
  Receipt Date: 20080205
  Transmission Date: 20080703
  Serious: Yes (Other)
  Sender: FDA-Public Use
  Company Number: US-PFIZER INC-2006009716

PATIENT
  Sex: Female

DRUGS (7)
  1. NORVASC [Suspect]
     Indication: BLOOD PRESSURE
     Route: 065
     Dates: start: 20030101, end: 20050101
  2. DETROL LA [Suspect]
     Indication: HYPERTONIC BLADDER
     Dosage: TEXT:UNKNOWN
     Route: 065
  3. LISINOPRIL [Concomitant]
     Route: 065
  4. COZAAR [Concomitant]
     Route: 065
  5. CATAPRES [Concomitant]
     Route: 065
  6. HYDROCHLOROTHIAZIDE [Concomitant]
     Route: 065
  7. FOSAMAX [Concomitant]
     Route: 065

REACTIONS (5)
  - CARDIAC VALVE DISEASE [None]
  - DRY MOUTH [None]
  - GLAUCOMA [None]
  - MUSCLE SPASMS [None]
  - OEDEMA PERIPHERAL [None]
